FAERS Safety Report 20148639 (Version 1)
Quarter: 2021Q4

REPORT INFORMATION
  Report Type: Report from Study
  Country: IL (occurrence: IL)
  Receive Date: 20211204
  Receipt Date: 20211204
  Transmission Date: 20220303
  Serious: Yes (Death, Hospitalization)
  Sender: FDA-Public Use
  Company Number: IL-NOVARTISPH-NVSC2021IL099780

PATIENT
  Age: 73 Year
  Sex: Female

DRUGS (2)
  1. TAFINLAR [Suspect]
     Active Substance: DABRAFENIB MESYLATE
     Indication: Malignant melanoma
     Dosage: 75 MG, BID
     Route: 048
     Dates: start: 20210405
  2. MEKINIST [Suspect]
     Active Substance: TRAMETINIB DIMETHYL SULFOXIDE
     Indication: Malignant melanoma
     Dosage: 1 MG, QD
     Route: 048
     Dates: start: 20210405

REACTIONS (6)
  - Organ failure [Fatal]
  - Blood pressure decreased [Fatal]
  - Dyspnoea [Fatal]
  - Confusional state [Unknown]
  - Somnolence [Recovered/Resolved]
  - Cough [Recovering/Resolving]

NARRATIVE: CASE EVENT DATE: 20210426
